FAERS Safety Report 5386772-0 (Version None)
Quarter: 2007Q3

REPORT INFORMATION
  Report Type: 
  Country: None (occurrence: None)
  Receive Date: 20070713
  Receipt Date: 20070703
  Transmission Date: 20080115
  Serious: Yes (Hospitalization)
  Sender: FDA-Public Use
  Company Number: FR-PFIZER INC-2007025528

PATIENT
  Sex: Male
  Weight: 51 kg

DRUGS (6)
  1. ZITHROMAX [Suspect]
     Route: 048
     Dates: start: 20070304, end: 20070309
  2. PREVISCAN [Suspect]
     Route: 048
  3. KARDEGIC [Suspect]
     Route: 048
  4. INIPOMP [Concomitant]
  5. LASIX [Concomitant]
  6. NITRODERM [Concomitant]
     Route: 062

REACTIONS (3)
  - ANAEMIA [None]
  - JOINT EFFUSION [None]
  - PROTHROMBIN LEVEL DECREASED [None]
